FAERS Safety Report 9176863 (Version 5)
Quarter: 2014Q4

REPORT INFORMATION
  Report Type: Report from Study
  Country: CA (occurrence: CA)
  Receive Date: 20130321
  Receipt Date: 20141117
  Transmission Date: 20150529
  Serious: Yes (Hospitalization, Other)
  Sender: FDA-Public Use
  Company Number: PHHO2009CA11059

PATIENT
  Age: 49 Year
  Sex: Female
  Weight: 54 kg

DRUGS (8)
  1. METFORMIN [Concomitant]
     Active Substance: METFORMIN HYDROCHLORIDE
     Route: 065
  2. PREDNISONE. [Concomitant]
     Active Substance: PREDNISONE
     Dosage: 900 UG, BID
     Route: 065
  3. CALCIUM W/VITAMIN D NOS [Concomitant]
     Active Substance: CALCIUM\VITAMIN D
     Dosage: 400 MG, UNK
     Route: 048
  4. VITAMIN C [Concomitant]
     Active Substance: ASCORBIC ACID
     Dosage: UNK
     Route: 065
  5. SOM230 [Suspect]
     Active Substance: PASIREOTIDE
     Dosage: EXTENSION PHASE
     Route: 058
     Dates: start: 20090906
  6. PREDNISONE. [Concomitant]
     Active Substance: PREDNISONE
     Dosage: 600 UG, UNK
  7. SOM230 [Suspect]
     Active Substance: PASIREOTIDE
     Indication: ACRAL OVERGROWTH
     Dosage: 900 UG, BID (CORE PHASE)
     Route: 058
     Dates: start: 20071001
  8. SOM230 [Suspect]
     Active Substance: PASIREOTIDE
     Dosage: EXTENSION PHASE
     Route: 058
     Dates: start: 20080930, end: 20090903

REACTIONS (6)
  - Atrioventricular block second degree [Recovering/Resolving]
  - Head injury [Recovered/Resolved]
  - Pericarditis [Recovering/Resolving]
  - Loss of consciousness [Recovered/Resolved]
  - Vertigo positional [Recovering/Resolving]
  - Hypotension [Recovered/Resolved]

NARRATIVE: CASE EVENT DATE: 20090904
